FAERS Safety Report 18678029 (Version 1)
Quarter: 2020Q4

REPORT INFORMATION
  Report Type: Report from Study
  Country: CA (occurrence: CA)
  Receive Date: 20201229
  Receipt Date: 20201229
  Transmission Date: 20210114
  Serious: Yes (Death, Other)
  Sender: FDA-Public Use
  Company Number: CA-MYLANLABS-2020M1061070

PATIENT
  Age: 37 Year
  Sex: Male

DRUGS (2)
  1. CLONAZEPAM. [Concomitant]
     Active Substance: CLONAZEPAM
     Dosage: 1 MILLIGRAM, PRN, Q6H
  2. CLOZAPINE. [Suspect]
     Active Substance: CLOZAPINE
     Indication: PRODUCT USED FOR UNKNOWN INDICATION
     Dosage: 150 MILLIGRAM
     Route: 048
     Dates: start: 20120718

REACTIONS (2)
  - Hypoxic-ischaemic encephalopathy [Fatal]
  - Loss of consciousness [Unknown]

NARRATIVE: CASE EVENT DATE: 20200612
